FAERS Safety Report 17538322 (Version 1)
Quarter: 2020Q1

REPORT INFORMATION
  Report Type: Spontaneous
  Country: US (occurrence: US)
  Receive Date: 20200313
  Receipt Date: 20200313
  Transmission Date: 20200409
  Serious: Yes (Other)
  Sender: FDA-Public Use
  Company Number: None

PATIENT
  Age: 56 Year
  Sex: Male

DRUGS (2)
  1. CAPECITABINE. [Suspect]
     Active Substance: CAPECITABINE
     Indication: PLASMA CELL MYELOMA
     Route: 048
  2. GEMCITABINE. [Suspect]
     Active Substance: GEMCITABINE

REACTIONS (3)
  - Decreased appetite [None]
  - Decubitus ulcer [None]
  - Cachexia [None]
